FAERS Safety Report 25099152 (Version 3)
Quarter: 2025Q1

REPORT INFORMATION
  Report Type: Spontaneous
  Country: DE (occurrence: DE)
  Receive Date: 20250320
  Receipt Date: 20250328
  Transmission Date: 20250409
  Serious: No
  Sender: SANDOZ
  Company Number: DE-SANDOZ-SDZ2025DE017052

PATIENT
  Age: 63 Year
  Sex: Female

DRUGS (1)
  1. ERELZI [Suspect]
     Active Substance: ETANERCEPT-SZZS
     Indication: Rheumatic disorder
     Dosage: 50 MG, QW
     Route: 065
     Dates: start: 20250306

REACTIONS (6)
  - Injection site swelling [Unknown]
  - Injection site discharge [Unknown]
  - Incorrect dose administered by device [Unknown]
  - Poor quality product administered [Unknown]
  - Incorrect product administration duration [Unknown]
  - Liquid product physical issue [Unknown]

NARRATIVE: CASE EVENT DATE: 20250306
